FAERS Safety Report 7480786-2 (Version None)
Quarter: 2011Q2

REPORT INFORMATION
  Report Type: 
  Country: None (occurrence: None)
  Receive Date: 20110506
  Receipt Date: 20110426
  Transmission Date: 20111010
  Serious: Yes (Hospitalization, Other)
  Sender: FDA-Public Use
  Company Number: DKLU1070071

PATIENT
  Age: 4 Year
  Sex: Male

DRUGS (7)
  1. DEXAMETHASONE [Suspect]
     Indication: ACUTE LYMPHOCYTIC LEUKAEMIA
     Dosage: 8 MG/M2 MILLIGRAM(S) / SQ. METER, DAYS 1-8
  2. VINCRISTINE [Concomitant]
  3. METHOTREXATE [Concomitant]
  4. ELSPAR [Suspect]
     Indication: ACUTE LYMPHOCYTIC LEUKAEMIA
     Dosage: 1 IN 2 D, INTRAMUSCULAR
     Route: 030
  5. CYTARABINE [Concomitant]
  6. HYDROCORTISONE [Concomitant]
  7. EPIRUBICIN [Concomitant]

REACTIONS (12)
  - RASH [None]
  - ENCEPHALITIS HERPES [None]
  - RED BLOOD CELLS CSF POSITIVE [None]
  - MENTAL IMPAIRMENT [None]
  - CEREBRAL INFARCTION [None]
  - NEUTROPHIL PERCENTAGE DECREASED [None]
  - MONOCYTE PERCENTAGE INCREASED [None]
  - HYPERCOAGULATION [None]
  - SUPERIOR SAGITTAL SINUS THROMBOSIS [None]
  - HAEMOGLOBIN DECREASED [None]
  - GRAND MAL CONVULSION [None]
  - STATUS EPILEPTICUS [None]
